FAERS Safety Report 19477225 (Version 3)
Quarter: 2021Q3

REPORT INFORMATION
  Report Type: Report from Study
  Country: MX (occurrence: MX)
  Receive Date: 20210630
  Receipt Date: 20210903
  Transmission Date: 20211014
  Serious: Yes (Death, Other)
  Sender: FDA-Public Use
  Company Number: MX-BAYER-2021-133243

PATIENT
  Age: 78 Year
  Sex: Male

DRUGS (6)
  1. NEXAVAR [Suspect]
     Active Substance: SORAFENIB
     Indication: HEPATOCELLULAR CARCINOMA
     Dosage: 400 MG, BID
     Route: 048
     Dates: start: 20210422
  2. ENALAPRIL [Concomitant]
     Active Substance: ENALAPRIL
     Indication: HYPERTENSION
     Dosage: 1 TABLET EVERY 12 HOURS
     Route: 048
     Dates: start: 2011, end: 20210812
  3. METFORMIN [Concomitant]
     Active Substance: METFORMIN HYDROCHLORIDE
     Indication: DIABETES MELLITUS
     Dosage: 1 TABLET EVERY 12 HOURS
     Route: 048
     Dates: start: 2009, end: 20210812
  4. NEXAVAR [Suspect]
     Active Substance: SORAFENIB
     Indication: HEPATOCELLULAR CARCINOMA
     Dosage: UNK
     Dates: end: 20210812
  5. NEXAVAR [Suspect]
     Active Substance: SORAFENIB
     Indication: HEPATOCELLULAR CARCINOMA
     Dosage: 200 MG, BID
     Route: 048
     Dates: start: 20210514, end: 20210614
  6. TAMSULOSIN [Concomitant]
     Active Substance: TAMSULOSIN
     Indication: PROSTATIC DISORDER
     Dosage: 1 TABLET EVERY 24 HOURS
     Route: 048
     Dates: start: 2019, end: 20210812

REACTIONS (20)
  - Hepatic failure [Not Recovered/Not Resolved]
  - Melaena [Recovering/Resolving]
  - Blood pressure increased [Recovering/Resolving]
  - Dry skin [Not Recovered/Not Resolved]
  - Haematemesis [Recovered/Resolved]
  - Skin warm [Not Recovered/Not Resolved]
  - Hepatocellular carcinoma [Fatal]
  - Therapeutic procedure [Unknown]
  - Limb discomfort [Not Recovered/Not Resolved]
  - Hypothyroidism [Not Recovered/Not Resolved]
  - Faeces discoloured [Not Recovered/Not Resolved]
  - Fatigue [Not Recovered/Not Resolved]
  - Bone pain [Recovering/Resolving]
  - Chromaturia [Not Recovered/Not Resolved]
  - Erythema [Not Recovered/Not Resolved]
  - Gastric ulcer [Not Recovered/Not Resolved]
  - Rash [Not Recovered/Not Resolved]
  - Skin abrasion [Not Recovered/Not Resolved]
  - Muscular weakness [Not Recovered/Not Resolved]
  - Productive cough [Not Recovered/Not Resolved]

NARRATIVE: CASE EVENT DATE: 20210426
